FAERS Safety Report 23707223 (Version 1)
Quarter: 2024Q2

REPORT INFORMATION
  Report Type: Spontaneous
  Country: US (occurrence: US)
  Receive Date: 20240404
  Receipt Date: 20240404
  Transmission Date: 20240716
  Serious: Yes (Other)
  Sender: FDA-Public Use
  Company Number: US-ENDO-CASE-0049611

PATIENT
  Sex: Male

DRUGS (15)
  1. TRAMADOL HYDROCHLORIDE [Suspect]
     Active Substance: TRAMADOL HYDROCHLORIDE
  2. MORPHINE SULFATE [Suspect]
     Active Substance: MORPHINE SULFATE
  3. ACETAMINOPHEN\HYDROCODONE BITARTRATE [Suspect]
     Active Substance: ACETAMINOPHEN\HYDROCODONE BITARTRATE
  4. ENDOCET [Suspect]
     Active Substance: ACETAMINOPHEN\OXYCODONE HYDROCHLORIDE
  5. TRAMADOL HYDROCHLORIDE [Suspect]
     Active Substance: TRAMADOL HYDROCHLORIDE
  6. ACETAMINOPHEN\OXYCODONE HYDROCHLORIDE [Suspect]
     Active Substance: ACETAMINOPHEN\OXYCODONE HYDROCHLORIDE
  7. HYDROCODONE BITARTRATE\IBUPROFEN [Suspect]
     Active Substance: HYDROCODONE BITARTRATE\IBUPROFEN
  8. OPANA [Suspect]
     Active Substance: OXYMORPHONE HYDROCHLORIDE
  9. IBUDONE [Suspect]
     Active Substance: HYDROCODONE BITARTRATE\IBUPROFEN
  10. ABSTRAL [Suspect]
     Active Substance: FENTANYL CITRATE
  11. MORPHINE SULFATE [Suspect]
     Active Substance: MORPHINE SULFATE
  12. DEPODUR [Suspect]
     Active Substance: MORPHINE SULFATE
  13. CODEINE PHOSPHATE\GUAIFENESIN [Suspect]
     Active Substance: CODEINE PHOSPHATE\GUAIFENESIN
  14. FENTANYL CITRATE [Suspect]
     Active Substance: FENTANYL CITRATE
  15. HYDROCODONE POLISTIREX AND CHLORPHENIRAMINE POLISTIREX [Suspect]
     Active Substance: CHLORPHENIRAMINE MALEATE\HYDROCODONE BITARTRATE

REACTIONS (2)
  - Overdose [Unknown]
  - Dependence [Unknown]
